FAERS Safety Report 6543157-9 (Version None)
Quarter: 2010Q1

REPORT INFORMATION
  Report Type: 
  Country: None (occurrence: None)
  Receive Date: 20100120
  Receipt Date: 20100111
  Transmission Date: 20100710
  Serious: Yes (Other)
  Sender: FDA-Public Use
  Company Number: US-ASTRAZENECA-2009SE12982

PATIENT
  Age: 750 Month
  Sex: Female
  Weight: 63 kg

DRUGS (5)
  1. ARIMIDEX [Suspect]
     Indication: BREAST CANCER
     Route: 048
     Dates: start: 20070101
  2. OMEPRAZOLE [Concomitant]
  3. ATENOLOL [Concomitant]
  4. LIPITOR [Concomitant]
  5. FOLIC ACID [Concomitant]

REACTIONS (2)
  - OSTEONECROSIS [None]
  - VERTIGO POSITIONAL [None]
